FAERS Safety Report 9460348 (Version 2)
Quarter: 2013Q3

REPORT INFORMATION
  Report Type: Spontaneous
  Country: JP (occurrence: JP)
  Receive Date: 20130815
  Receipt Date: 20130904
  Transmission Date: 20140515
  Serious: Yes (Other)
  Sender: FDA-Public Use
  Company Number: JP-OTSUKA-JP-2013-12992

PATIENT
  Age: 70 Year
  Sex: Male

DRUGS (1)
  1. PLETAAL [Suspect]
     Indication: CEREBRAL INFARCTION
     Dosage: UNK
     Route: 048
     Dates: start: 2000

REACTIONS (5)
  - Cholangitis acute [Unknown]
  - Haematemesis [Unknown]
  - Dieulafoy^s vascular malformation [Unknown]
  - Upper gastrointestinal haemorrhage [Unknown]
  - Anaemia [Unknown]
